FAERS Safety Report 4530536-4 (Version None)
Quarter: 2004Q4

REPORT INFORMATION
  Report Type: 
  Country: None (occurrence: None)
  Receive Date: 20041216
  Receipt Date: 20041210
  Transmission Date: 20050328
  Serious: Yes (Death)
  Sender: FDA-Public Use
  Company Number: B0357567A

PATIENT
  Age: 58 Year
  Sex: Male

DRUGS (5)
  1. LAMIVUDINE (LAMIVUDINE) [Suspect]
     Dates: start: 19961201
  2. STAVUDINE [Concomitant]
  3. NEVIRAPINE [Concomitant]
  4. DIDANOSINE [Concomitant]
  5. INDINAVIR SULFATE [Concomitant]

REACTIONS (2)
  - HEPATIC FAILURE [None]
  - HEPATITIS B VIRUS [None]
